FAERS Safety Report 7424027-0 (Version None)
Quarter: 2011Q2

REPORT INFORMATION
  Report Type: 
  Country: None (occurrence: None)
  Receive Date: 20110419
  Receipt Date: 20110409
  Transmission Date: 20111010
  Serious: Yes (Other)
  Sender: FDA-Public Use
  Company Number: AR-GENZYME-CERZ-1001839

PATIENT
  Sex: Female

DRUGS (2)
  1. ANTIINFLAMMATORY [Concomitant]
     Indication: PRODUCT USED FOR UNKNOWN INDICATION
  2. CEREZYME [Suspect]
     Indication: GAUCHER'S DISEASE
     Dosage: 60 U/KG, UNK
     Dates: start: 20040101

REACTIONS (4)
  - HIP DYSPLASIA [None]
  - TENDONITIS [None]
  - OSTEONECROSIS [None]
  - BONE DENSITY DECREASED [None]
